FAERS Safety Report 11569880 (Version 1)
Quarter: 2015Q3

REPORT INFORMATION
  Report Type: Spontaneous
  Country: US (occurrence: US)
  Receive Date: 20150916
  Receipt Date: 20150916
  Transmission Date: 20151125
  Serious: No
  Sender: FDA-Public Use
  Company Number: US-ELI_LILLY_AND_COMPANY-US200908006084

PATIENT
  Age: 86 Year
  Sex: Female

DRUGS (1)
  1. FORTEO [Suspect]
     Active Substance: TERIPARATIDE
     Dates: start: 20090803, end: 20090923

REACTIONS (11)
  - Adverse drug reaction [Unknown]
  - Nausea [Recovering/Resolving]
  - Myalgia [Unknown]
  - Memory impairment [Unknown]
  - Arthralgia [Unknown]
  - Gait disturbance [Unknown]
  - Weight increased [Unknown]
  - Fatigue [Unknown]
  - Oedema peripheral [Unknown]
  - Contusion [Unknown]
  - Pain [Unknown]

NARRATIVE: CASE EVENT DATE: 20090803
